FAERS Safety Report 22632782 (Version 1)
Quarter: 2023Q2

REPORT INFORMATION
  Report Type: Spontaneous
  Country: JP (occurrence: JP)
  Receive Date: 20230623
  Receipt Date: 20230623
  Transmission Date: 20230721
  Serious: Yes (Hospitalization)
  Sender: FDA-Public Use
  Company Number: JP-002147023-NVSJ2023JP010004

PATIENT
  Sex: Female

DRUGS (2)
  1. GLYCOPYRRONIUM\INDACATEROL [Suspect]
     Active Substance: GLYCOPYRRONIUM\INDACATEROL
     Indication: Product used for unknown indication
     Dosage: 1DF: GLYCOPYRRONIUM BROMIDE 50UG, INDACATEROL MALEATE 110UG
  2. GLYCOPYRRONIUM\INDACATEROL [Suspect]
     Active Substance: GLYCOPYRRONIUM\INDACATEROL
     Dosage: 1DF: GLYCOPYRRONIUM BROMIDE 50UG, INDACATEROL MALEATE 110UG
     Route: 048

REACTIONS (2)
  - Fracture [Unknown]
  - Incorrect route of product administration [Unknown]
